FAERS Safety Report 4804101-5 (Version None)
Quarter: 2005Q4

REPORT INFORMATION
  Report Type: 
  Country: None (occurrence: None)
  Receive Date: 20051014
  Receipt Date: 20051004
  Transmission Date: 20060501
  Serious: Yes (Other)
  Sender: FDA-Public Use
  Company Number: HQWYE839005OCT05

PATIENT
  Age: 43 Year
  Sex: Female
  Weight: 81.72 kg

DRUGS (10)
  1. EFFEXOR XR [Suspect]
     Indication: DEPRESSION
     Dosage: 150 MG 1X PER 1 DAY, ORAL
     Route: 048
     Dates: start: 20050101, end: 20050929
  2. DURAGESIC-100 [Concomitant]
  3. CLONAZEPAM [Concomitant]
  4. CENESTIN [Concomitant]
  5. FOLIC ACID [Concomitant]
  6. ONE-A-DAY [Concomitant]
  7. RANITIDINE [Concomitant]
  8. TEGRETOL [Concomitant]
  9. VICODIN [Concomitant]
  10. BACLOFEN [Concomitant]

REACTIONS (23)
  - AGITATION [None]
  - ANXIETY [None]
  - CONFUSIONAL STATE [None]
  - COORDINATION ABNORMAL [None]
  - CRYING [None]
  - DRUG WITHDRAWAL SYNDROME [None]
  - EMOTIONAL DISORDER [None]
  - FALL [None]
  - FATIGUE [None]
  - GRAND MAL CONVULSION [None]
  - HEAD INJURY [None]
  - INSOMNIA [None]
  - MEMORY IMPAIRMENT [None]
  - MOOD ALTERED [None]
  - NAUSEA [None]
  - NERVOUSNESS [None]
  - NIGHTMARE [None]
  - SUICIDAL IDEATION [None]
  - THINKING ABNORMAL [None]
  - TINNITUS [None]
  - TREATMENT NONCOMPLIANCE [None]
  - TREMOR [None]
  - VERTIGO [None]
